FAERS Safety Report 17851633 (Version 3)
Quarter: 2020Q2

REPORT INFORMATION
  Report Type: Report from Study
  Country: GB (occurrence: GB)
  Receive Date: 20200602
  Receipt Date: 20200611
  Transmission Date: 20200714
  Serious: Yes (Hospitalization, Other)
  Sender: FDA-Public Use
  Company Number: NVSC2020GB150811

PATIENT
  Sex: Male

DRUGS (5)
  1. PREDNISOLONE. [Suspect]
     Active Substance: PREDNISOLONE
     Indication: PRODUCT USED FOR UNKNOWN INDICATION
     Route: 065
  2. CIPROFLOXACIN. [Concomitant]
     Active Substance: CIPROFLOXACIN
     Indication: PRODUCT USED FOR UNKNOWN INDICATION
     Route: 065
  3. HYRIMOZ [Suspect]
     Active Substance: ADALIMUMAB-ADAZ
     Indication: PSORIATIC ARTHROPATHY
     Dosage: 40 MG EOW (END OF THE WEEK)
     Route: 058
     Dates: start: 20190510
  4. NITROFURANTOIN. [Concomitant]
     Active Substance: NITROFURANTOIN
     Indication: PRODUCT USED FOR UNKNOWN INDICATION
     Dosage: UNK
     Route: 065
     Dates: start: 20200528
  5. CYCLIZINE [Concomitant]
     Active Substance: CYCLIZINE
     Indication: PRODUCT USED FOR UNKNOWN INDICATION
     Route: 065

REACTIONS (8)
  - Urinary tract infection [Not Recovered/Not Resolved]
  - Sepsis [Unknown]
  - Chills [Unknown]
  - Urinary retention [Not Recovered/Not Resolved]
  - Malaise [Unknown]
  - Drug ineffective [Not Recovered/Not Resolved]
  - Infection [Unknown]
  - Tremor [Unknown]
